FAERS Safety Report 5526284-4 (Version None)
Quarter: 2007Q4

REPORT INFORMATION
  Report Type: 
  Country: None (occurrence: None)
  Receive Date: 20071121
  Receipt Date: 20071121
  Transmission Date: 20080405
  Serious: Yes (Hospitalization)
  Sender: FDA-Public Use
  Company Number: None

PATIENT
  Sex: Male
  Weight: 92 kg

DRUGS (9)
  1. CYCLOPHOSPHAMIDE [Suspect]
     Dosage: 2000 MG
  2. CYTARABINE [Suspect]
     Dosage: 40 MG
  3. DEXAMETHASONE TAB [Suspect]
     Dosage: 100 MG
  4. DOXORUBICIN HYDROCHLORIDE [Suspect]
     Dosage: 104 MG
  5. G-CSF (FILGRASTIM, AMGEN) [Suspect]
     Dosage: 4500 MCG
  6. LEUCOVORIN CALCIUM [Suspect]
     Dosage: 320 MG
  7. METHOTREXATE [Suspect]
     Dosage: 3060 MG
  8. RITUXIMAB (MOAB C2B8 ANTI CD20, CHIMERIC) [Suspect]
     Dosage: 800 MG
  9. VINCRISTINE SULFATE [Suspect]
     Dosage: 2 MG

REACTIONS (11)
  - CEREBRAL HAEMORRHAGE [None]
  - CLONIC CONVULSION [None]
  - DISEASE RECURRENCE [None]
  - EFFUSION [None]
  - FALL [None]
  - HYPERTENSION [None]
  - METASTASES TO MENINGES [None]
  - NERVOUS SYSTEM DISORDER [None]
  - NUCLEAR MAGNETIC RESONANCE IMAGING BRAIN ABNORMAL [None]
  - SUBDURAL HAEMATOMA [None]
  - TONGUE BITING [None]
